FAERS Safety Report 16976273 (Version 3)
Quarter: 2020Q1

REPORT INFORMATION
  Report Type: Report from Study
  Country: US (occurrence: US)
  Receive Date: 20191030
  Receipt Date: 20200211
  Transmission Date: 20200409
  Serious: Yes (Hospitalization)
  Sender: FDA-Public Use
  Company Number: US-EISAI MEDICAL RESEARCH-EC-2019-064220

PATIENT
  Age: 49 Year
  Sex: Female
  Weight: 79.9 kg

DRUGS (13)
  1. POTASSIUM CHLORIDE. [Concomitant]
     Active Substance: POTASSIUM CHLORIDE
  2. MYCOSTATIN [Concomitant]
     Active Substance: NYSTATIN
  3. ERIBULIN [Suspect]
     Active Substance: ERIBULIN
     Indication: LEIOMYOSARCOMA
     Route: 042
     Dates: start: 20190603, end: 2019
  4. ERIBULIN [Suspect]
     Active Substance: ERIBULIN
     Route: 042
     Dates: start: 20191002, end: 20191002
  5. ERIBULIN [Suspect]
     Active Substance: ERIBULIN
     Route: 042
     Dates: start: 2019, end: 20191204
  6. VANCOMYCIN [Concomitant]
     Active Substance: VANCOMYCIN
  7. ZOFRAN [Concomitant]
     Active Substance: ONDANSETRON HYDROCHLORIDE
  8. PEMBROLIZUMAB. [Suspect]
     Active Substance: PEMBROLIZUMAB
     Indication: LEIOMYOSARCOMA
     Route: 042
     Dates: start: 20190603, end: 20190828
  9. TYLENOL [Concomitant]
     Active Substance: ACETAMINOPHEN
  10. VALTREX [Concomitant]
     Active Substance: VALACYCLOVIR HYDROCHLORIDE
  11. MAGNESIUM OXIDE. [Concomitant]
     Active Substance: MAGNESIUM OXIDE
  12. ADVIL [Concomitant]
     Active Substance: IBUPROFEN
  13. BIOTIN [Concomitant]
     Active Substance: BIOTIN

REACTIONS (7)
  - Alanine aminotransferase increased [Recovering/Resolving]
  - Amylase increased [Unknown]
  - Immune-mediated enterocolitis [Unknown]
  - Pyrexia [Unknown]
  - Lipase increased [Unknown]
  - Aspartate aminotransferase increased [Recovering/Resolving]
  - Diarrhoea [Unknown]

NARRATIVE: CASE EVENT DATE: 20191023
